FAERS Safety Report 19713878 (Version 16)
Quarter: 2022Q4

REPORT INFORMATION
  Report Type: Report from Study
  Country: US (occurrence: US)
  Receive Date: 20210818
  Receipt Date: 20221202
  Transmission Date: 20230113
  Serious: No
  Sender: FDA-Public Use
  Company Number: NVSC2021US183153

PATIENT
  Age: 62 Year
  Sex: Female
  Weight: 61.7 kg

DRUGS (21)
  1. ILARIS [Suspect]
     Active Substance: CANAKINUMAB
     Indication: Still^s disease
     Dosage: 280 MG, QMO
     Route: 058
  2. ILARIS [Suspect]
     Active Substance: CANAKINUMAB
     Dosage: 240 MG, QMO
     Route: 058
     Dates: start: 20191101, end: 20220301
  3. ILARIS [Suspect]
     Active Substance: CANAKINUMAB
     Dosage: 240 MG, EVERY 4 WEEKS
     Route: 058
     Dates: start: 201911
  4. ILARIS [Suspect]
     Active Substance: CANAKINUMAB
     Dosage: 240 MG, EVERY 4 WEEKS
     Route: 058
     Dates: start: 20201123
  5. ILARIS [Suspect]
     Active Substance: CANAKINUMAB
     Dosage: 240 MG, EVERY 4 WEEKS
     Route: 054
     Dates: start: 20201223
  6. ILARIS [Suspect]
     Active Substance: CANAKINUMAB
     Dosage: 280 MG
     Route: 058
     Dates: start: 20210907
  7. ILARIS [Suspect]
     Active Substance: CANAKINUMAB
     Dosage: 280 MG, EVERY 4 WEEKS
     Route: 065
     Dates: start: 20210907
  8. ILARIS [Suspect]
     Active Substance: CANAKINUMAB
     Dosage: 260 MG, QMO
     Route: 058
  9. ILARIS [Suspect]
     Active Substance: CANAKINUMAB
     Dosage: 260 MG, QMO
     Route: 058
  10. ILARIS [Suspect]
     Active Substance: CANAKINUMAB
     Dosage: UNK
     Route: 065
  11. ILARIS [Suspect]
     Active Substance: CANAKINUMAB
     Dosage: UNK
     Route: 065
  12. ILARIS [Suspect]
     Active Substance: CANAKINUMAB
     Dosage: UNK
     Route: 065
  13. ILARIS [Suspect]
     Active Substance: CANAKINUMAB
     Dosage: 260 MG, QMO (03 DEC 2021)
     Route: 058
     Dates: end: 20211229
  14. ILARIS [Suspect]
     Active Substance: CANAKINUMAB
     Dosage: 240 MG, QMO
     Route: 058
     Dates: start: 20220203
  15. ILARIS [Suspect]
     Active Substance: CANAKINUMAB
     Dosage: UNK
     Route: 058
  16. ILARIS [Suspect]
     Active Substance: CANAKINUMAB
     Dosage: 240 MG, EVERY 4 WEEKS
     Route: 058
  17. ILARIS [Suspect]
     Active Substance: CANAKINUMAB
     Dosage: 240 MG, EVERY 4 WEEKS
     Route: 058
  18. HYDROXYCHLOROQUINE [Concomitant]
     Active Substance: HYDROXYCHLOROQUINE
     Indication: Morphoea
     Dosage: UNK
     Route: 065
  19. HYDROXYCHLOROQUINE [Concomitant]
     Active Substance: HYDROXYCHLOROQUINE
     Dosage: 200 MG (OMCE DAILY EVERY OTHER DAY TWICE DAILY)
     Route: 065
     Dates: start: 202108
  20. PREDNISONE [Concomitant]
     Active Substance: PREDNISONE
     Indication: Still^s disease
     Dosage: UNK
     Route: 065
  21. PREDNISONE [Concomitant]
     Active Substance: PREDNISONE
     Dosage: 10 MG
     Route: 065
     Dates: start: 202111, end: 202201

REACTIONS (18)
  - Fatigue [Not Recovered/Not Resolved]
  - Pain [Recovering/Resolving]
  - Blood creatinine increased [Unknown]
  - C-reactive protein increased [Unknown]
  - Red blood cell sedimentation rate increased [Unknown]
  - Weight decreased [Recovered/Resolved]
  - Myalgia [Not Recovered/Not Resolved]
  - Eczema [Not Recovered/Not Resolved]
  - Skin discolouration [Not Recovered/Not Resolved]
  - Dysstasia [Not Recovered/Not Resolved]
  - Musculoskeletal stiffness [Unknown]
  - Erythema [Unknown]
  - Contusion [Not Recovered/Not Resolved]
  - Swelling [Not Recovered/Not Resolved]
  - Arthralgia [Not Recovered/Not Resolved]
  - Rash [Recovered/Resolved]
  - Rash [Unknown]
  - Pruritus [Unknown]

NARRATIVE: CASE EVENT DATE: 20210730
